FAERS Safety Report 5538235-7 (Version None)
Quarter: 2007Q4

REPORT INFORMATION
  Report Type: 
  Country: None (occurrence: None)
  Receive Date: 20071207
  Receipt Date: 20071128
  Transmission Date: 20080405
  Serious: Yes (Death, Hospitalization, Other)
  Sender: FDA-Public Use
  Company Number: US-MERCK-0711USA05865

PATIENT
  Age: 73 Year
  Sex: Male

DRUGS (10)
  1. DECADRON [Suspect]
     Indication: MULTIPLE MYELOMA
     Route: 048
     Dates: start: 20070112, end: 20070305
  2. REVLIMID [Suspect]
     Indication: MULTIPLE MYELOMA
     Route: 048
     Dates: start: 20070112, end: 20070305
  3. NAPROXEN [Suspect]
     Indication: OSTEOARTHRITIS
     Route: 065
  4. ALLOPURINOL [Concomitant]
     Route: 065
  5. SERTRALINE HYDROCHLORIDE [Concomitant]
     Indication: DEPRESSION
     Route: 065
  6. SKELAXIN [Concomitant]
     Route: 065
  7. VICODIN [Concomitant]
     Indication: PAIN
     Route: 065
  8. TOPROL-XL [Concomitant]
     Indication: HYPERTENSION
     Route: 065
  9. ZANTAC [Concomitant]
     Indication: ULCER
     Route: 065
  10. ZANTAC [Concomitant]
     Indication: HYPERCHLORHYDRIA
     Route: 065

REACTIONS (5)
  - DUODENAL ULCER HAEMORRHAGE [None]
  - HAEMATEMESIS [None]
  - MULTI-ORGAN FAILURE [None]
  - PNEUMONIA [None]
  - RESPIRATORY FAILURE [None]
